FAERS Safety Report 18931267 (Version 1)
Quarter: 2021Q1

REPORT INFORMATION
  Report Type: Spontaneous
  Country: US (occurrence: US)
  Receive Date: 20210223
  Receipt Date: 20210223
  Transmission Date: 20210420
  Serious: No
  Sender: FDA-Public Use
  Company Number: US-JAZZ-JPI-P-014516

PATIENT
  Age: 58 Year
  Sex: Female
  Weight: 51.19 kg

DRUGS (12)
  1. XYREM [Suspect]
     Active Substance: SODIUM OXYBATE
     Indication: SOMNOLENCE
     Route: 048
     Dates: start: 20110310, end: 20110316
  2. XYREM [Suspect]
     Active Substance: SODIUM OXYBATE
     Indication: NARCOLEPSY
     Dosage: 4.5 GRAM, BID
     Route: 048
     Dates: start: 20110331, end: 2011
  3. XYREM [Suspect]
     Active Substance: SODIUM OXYBATE
     Dosage: 3.75 GRAM, BID
     Route: 048
     Dates: start: 2011, end: 20110726
  4. LISDEXAMFETAMINE DIMESYLATE [Concomitant]
     Active Substance: LISDEXAMFETAMINE DIMESYLATE
     Indication: PRODUCT USED FOR UNKNOWN INDICATION
  5. PANTOPRAZOLE [Concomitant]
     Active Substance: PANTOPRAZOLE
     Indication: PRODUCT USED FOR UNKNOWN INDICATION
  6. THYROID HORMONE [Concomitant]
     Indication: PRODUCT USED FOR UNKNOWN INDICATION
  7. XYREM [Suspect]
     Active Substance: SODIUM OXYBATE
     Dosage: BID (3.75 GM FIRST DOSE/ 4 GM SECOND DOSE)
     Route: 048
  8. PROGESTERONE. [Concomitant]
     Active Substance: PROGESTERONE
     Indication: PRODUCT USED FOR UNKNOWN INDICATION
  9. XYREM [Suspect]
     Active Substance: SODIUM OXYBATE
     Indication: SLEEP DISORDER
     Dosage: 3 GRAM, BID
     Route: 048
     Dates: start: 20110317, end: 20110330
  10. XYREM [Suspect]
     Active Substance: SODIUM OXYBATE
     Dosage: 4 GRAM, BID
     Route: 048
     Dates: start: 20110727
  11. RANITIDINE. [Concomitant]
     Active Substance: RANITIDINE
     Indication: PRODUCT USED FOR UNKNOWN INDICATION
  12. XYREM [Suspect]
     Active Substance: SODIUM OXYBATE
     Dosage: 4.5 GRAM, BID
     Route: 048

REACTIONS (28)
  - Clumsiness [Unknown]
  - Feeling jittery [Recovered/Resolved]
  - Dry mouth [Not Recovered/Not Resolved]
  - Hypoaesthesia [Unknown]
  - Foot fracture [Unknown]
  - Increased upper airway secretion [Not Recovered/Not Resolved]
  - Heart rate increased [Unknown]
  - Middle insomnia [Unknown]
  - Confusional state [Recovered/Resolved]
  - Depression [Unknown]
  - Fall [Recovered/Resolved]
  - Restless legs syndrome [Recovered/Resolved]
  - Disturbance in attention [Unknown]
  - Dizziness [Unknown]
  - Weight decreased [Unknown]
  - Sudden onset of sleep [Unknown]
  - Dysgeusia [Unknown]
  - Condition aggravated [Recovered/Resolved]
  - Dyskinesia [Recovered/Resolved]
  - Feeling abnormal [Unknown]
  - Muscular weakness [Unknown]
  - Disorientation [Recovered/Resolved]
  - Nocturia [Unknown]
  - Enuresis [Unknown]
  - Speech disorder [Not Recovered/Not Resolved]
  - Feeling hot [Recovered/Resolved]
  - Urinary incontinence [Unknown]
  - Tremor [Unknown]

NARRATIVE: CASE EVENT DATE: 2011
